FAERS Safety Report 14597706 (Version 1)
Quarter: 2018Q1

REPORT INFORMATION
  Report Type: Spontaneous
  Country: US (occurrence: US)
  Receive Date: 20180302
  Receipt Date: 20180302
  Transmission Date: 20180509
  Serious: No
  Sender: FDA-Public Use
  Company Number: None

PATIENT
  Age: 63 Year
  Sex: Male

DRUGS (1)
  1. AMPYRA [Suspect]
     Active Substance: DALFAMPRIDINE
     Indication: MULTIPLE SCLEROSIS
     Route: 048
     Dates: start: 20180203

REACTIONS (4)
  - Urine leukocyte esterase positive [None]
  - Enterococcus test positive [None]
  - Laboratory test abnormal [None]
  - Bacterial test positive [None]

NARRATIVE: CASE EVENT DATE: 20180214
